FAERS Safety Report 8382412-7 (Version None)
Quarter: 2012Q2

REPORT INFORMATION
  Report Type: 
  Country: None (occurrence: None)
  Receive Date: 20120524
  Receipt Date: 20120516
  Transmission Date: 20120825
  Serious: Yes (Other)
  Sender: FDA-Public Use
  Company Number: PHEH2012US010315

PATIENT
  Sex: Female

DRUGS (2)
  1. GLEEVEC [Suspect]
     Dosage: 400 MG, UNK
     Dates: start: 20001001, end: 20001227
  2. GLEEVEC [Suspect]
     Dosage: 300 MG, UNK
     Dates: start: 20001227

REACTIONS (2)
  - BREAST CANCER FEMALE [None]
  - PANCYTOPENIA [None]
